FAERS Safety Report 24627072 (Version 2)
Quarter: 2025Q2

REPORT INFORMATION
  Report Type: Spontaneous
  Country: US (occurrence: US)
  Receive Date: 20241115
  Receipt Date: 20250511
  Transmission Date: 20250717
  Serious: No
  Sender: SANOFI AVENTIS
  Company Number: US-SA-2024SA200822

PATIENT
  Age: 58 Year
  Sex: Female

DRUGS (2)
  1. DUPIXENT [Suspect]
     Active Substance: DUPILUMAB
     Indication: Dermatitis atopic
     Route: 058
     Dates: start: 20240604, end: 20240604
  2. DUPIXENT [Suspect]
     Active Substance: DUPILUMAB
     Dosage: 600 MG, QOW
     Route: 058
     Dates: start: 202406

REACTIONS (2)
  - Incorrect dose administered [Unknown]
  - Drug effect less than expected [Unknown]

NARRATIVE: CASE EVENT DATE: 20240601
